FAERS Safety Report 18232090 (Version 1)
Quarter: 2020Q3

REPORT INFORMATION
  Report Type: Spontaneous
  Country: FR (occurrence: FR)
  Receive Date: 20200904
  Receipt Date: 20200904
  Transmission Date: 20201103
  Serious: Yes (Hospitalization)
  Sender: FDA-Public Use
  Company Number: FR-US-PROVELL PHARMACEUTICALS LLC-E2B_90079716

PATIENT
  Age: 55 Year
  Sex: Female
  Weight: 70 kg

DRUGS (1)
  1. LEVOTHYROX 125 [Suspect]
     Active Substance: LEVOTHYROXINE
     Indication: THYROIDECTOMY
     Dosage: SCORED TABLET;?NOT SPECIFIED
     Route: 048

REACTIONS (8)
  - Insomnia [Not Recovered/Not Resolved]
  - Headache [Not Recovered/Not Resolved]
  - Arthralgia [Not Recovered/Not Resolved]
  - Eye pain [Not Recovered/Not Resolved]
  - Diffuse alopecia [Not Recovered/Not Resolved]
  - Myalgia [Not Recovered/Not Resolved]
  - Paralysis [Not Recovered/Not Resolved]
  - Dyspnoea [Not Recovered/Not Resolved]

NARRATIVE: CASE EVENT DATE: 20200810
